FAERS Safety Report 19315429 (Version 13)
Quarter: 2024Q1

REPORT INFORMATION
  Report Type: Spontaneous
  Country: US (occurrence: US)
  Receive Date: 20210527
  Receipt Date: 20240215
  Transmission Date: 20240410
  Serious: Yes (Other)
  Sender: FDA-Public Use
  Company Number: US-PFIZER INC-2019489709

PATIENT
  Age: 67 Year
  Sex: Female

DRUGS (6)
  1. RETACRIT [Suspect]
     Active Substance: EPOETIN ALFA-EPBX
     Indication: Type 1 diabetes mellitus
     Dosage: 4000 IU, 2X/WEEK (4,000U TWICE WEEKLY)
     Route: 058
  2. RETACRIT [Suspect]
     Active Substance: EPOETIN ALFA-EPBX
     Indication: Hyperglycaemia
     Dosage: 4000 IU/ML
  3. RETACRIT [Suspect]
     Active Substance: EPOETIN ALFA-EPBX
     Dosage: 4000 IU, 2X/WEEK (BI WEEKLY)
  4. RETACRIT [Suspect]
     Active Substance: EPOETIN ALFA-EPBX
     Dosage: 2000 IU (FOUR TIMES WEEKLY)
  5. RETACRIT [Suspect]
     Active Substance: EPOETIN ALFA-EPBX
     Indication: Type 1 diabetes mellitus
     Dosage: 4000 IU, 2X/WEEK
  6. RETACRIT [Suspect]
     Active Substance: EPOETIN ALFA-EPBX
     Indication: Hyperglycaemia
     Dosage: 10000 IU

REACTIONS (6)
  - Cardiac disorder [Unknown]
  - Anaemia [Unknown]
  - Feeling abnormal [Unknown]
  - COVID-19 [Not Recovered/Not Resolved]
  - Malaise [Unknown]
  - Off label use [Unknown]
